FAERS Safety Report 9358579 (Version 1)
Quarter: 2013Q2

REPORT INFORMATION
  Report Type: Spontaneous
  Country: US (occurrence: US)
  Receive Date: 20130620
  Receipt Date: 20130620
  Transmission Date: 20140414
  Serious: No
  Sender: FDA-Public Use
  Company Number: US-US-EMD SERONO, INC.-7167625

PATIENT
  Age: 38 Year
  Sex: Female

DRUGS (2)
  1. REBIF [Suspect]
     Indication: MULTIPLE SCLEROSIS
     Route: 058
     Dates: start: 20051212
  2. UNSPECIFIED HYPERTENSION MEDICATION [Concomitant]
     Indication: HYPERTENSION

REACTIONS (3)
  - Pharyngitis [Unknown]
  - Neuropathy peripheral [Not Recovered/Not Resolved]
  - Depression [Not Recovered/Not Resolved]
